FAERS Safety Report 8309977-5 (Version None)
Quarter: 2012Q2

REPORT INFORMATION
  Report Type: 
  Country: None (occurrence: None)
  Receive Date: 20120425
  Receipt Date: 20120419
  Transmission Date: 20120825
  Serious: Yes (Death, Hospitalization, Other)
  Sender: FDA-Public Use
  Company Number: ES-PFIZER INC-2011287547

PATIENT
  Age: 73 Year
  Sex: Female
  Weight: 84.6 kg

DRUGS (7)
  1. ALLOPURINOL [Concomitant]
     Indication: GOUT
     Dosage: 300 MG, UNK
     Route: 048
     Dates: start: 20111011
  2. SIMVASTATIN [Concomitant]
     Indication: LIPIDS ABNORMAL
     Dosage: UNK
     Dates: start: 20100511
  3. ENALAPRIL [Concomitant]
     Indication: HYPERTENSION
     Dosage: UNK
     Dates: start: 20090119
  4. HIDROFEROL [Concomitant]
     Indication: OSTEOPOROSIS
     Dosage: UNK
     Dates: start: 20080612
  5. IBUPROFEN [Concomitant]
     Indication: OSTEOARTHRITIS
     Dosage: UNK
     Dates: start: 20090119
  6. PEGVISOMANT [Suspect]
     Indication: ACROMEGALY
     Dosage: 20 MG, 7 INJECTIONS/WEEK
     Dates: start: 20060426
  7. DIAZEPAM [Concomitant]
     Indication: MUSCLE RELAXANT THERAPY
     Dosage: UNK
     Dates: start: 20090119

REACTIONS (2)
  - AORTIC ANEURYSM RUPTURE [None]
  - DRUG HYPERSENSITIVITY [None]
